FAERS Safety Report 10196145 (Version 1)
Quarter: 2014Q2

REPORT INFORMATION
  Report Type: Spontaneous
  Country: GB (occurrence: None)
  Receive Date: 20140522
  Receipt Date: 20140522
  Transmission Date: 20141212
  Serious: Yes (Other)
  Sender: FDA-Public Use
  Company Number: GB-DEXPHARM-20140265

PATIENT
  Age: 72 Year
  Sex: Female

DRUGS (5)
  1. OMEPRAZOLE [Suspect]
  2. CANDESARTAN [Concomitant]
  3. DABIGATRAN [Concomitant]
  4. EZETROL [Concomitant]
  5. GLICLAZIDE [Concomitant]

REACTIONS (6)
  - Headache [None]
  - Anosmia [None]
  - Ageusia [None]
  - Tongue exfoliation [None]
  - Stomatitis [None]
  - Tongue discolouration [None]
